FAERS Safety Report 16116954 (Version 1)
Quarter: 2019Q1

REPORT INFORMATION
  Report Type: Spontaneous
  Country: US (occurrence: US)
  Receive Date: 20190221
  Receipt Date: 20190221
  Transmission Date: 20190418
  Serious: Yes (Disabling)
  Sender: FDA-Public Use
  Company Number: None

PATIENT
  Age: 58 Year
  Sex: Female
  Weight: 113.4 kg

DRUGS (19)
  1. LEVAQUIN [Suspect]
     Active Substance: LEVOFLOXACIN
     Indication: PNEUMONIA
     Dosage: ?          QUANTITY:9 TABLETS;OTHER FREQUENCY:1 DAILY;?
     Dates: start: 20160307, end: 20160314
  2. VICODIN [Concomitant]
     Active Substance: ACETAMINOPHEN\HYDROCODONE BITARTRATE
  3. GABEPENTIN [Concomitant]
  4. PROBIOTICS [Concomitant]
     Active Substance: PROBIOTICS NOS
  5. VITAMIN D3 [Concomitant]
     Active Substance: CHOLECALCIFEROL
  6. LORATADINE. [Concomitant]
     Active Substance: LORATADINE
  7. INDOMETHOCIN [Concomitant]
  8. CANABIS [Concomitant]
  9. MAGNESIUM CITRATE. [Concomitant]
     Active Substance: MAGNESIUM CITRATE
  10. VITAMIN C [Suspect]
     Active Substance: ASCORBIC ACID
  11. LEVAQUIN [Suspect]
     Active Substance: LEVOFLOXACIN
     Indication: CYSTITIS
     Dosage: ?          QUANTITY:9 TABLETS;OTHER FREQUENCY:1 DAILY;?
     Dates: start: 20160307, end: 20160314
  12. LISINOPRIL. [Concomitant]
     Active Substance: LISINOPRIL
  13. SULFASALINZINE [Concomitant]
  14. LORAZEPAM. [Concomitant]
     Active Substance: LORAZEPAM
  15. ROPINEROL [Concomitant]
  16. FLONASE [Concomitant]
     Active Substance: FLUTICASONE PROPIONATE
  17. PROVENTIL HFA [Concomitant]
     Active Substance: ALBUTEROL SULFATE
  18. POTASSIUM CITRATE. [Concomitant]
     Active Substance: POTASSIUM CITRATE
  19. IRON [Concomitant]
     Active Substance: IRON

REACTIONS (2)
  - Generalised oedema [None]
  - Drug hypersensitivity [None]

NARRATIVE: CASE EVENT DATE: 20160314
